FAERS Safety Report 5812085-6 (Version None)
Quarter: 2008Q3

REPORT INFORMATION
  Report Type: 
  Country: None (occurrence: None)
  Receive Date: 20080716
  Receipt Date: 20080709
  Transmission Date: 20090109
  Serious: Yes (Death, Hospitalization)
  Sender: FDA-Public Use
  Company Number: JP-ABBOTT-07P-087-0366024-00

PATIENT
  Age: 88 Year
  Sex: Male
  Weight: 47.2 kg

DRUGS (5)
  1. LEUPROLIDE ACETATE [Suspect]
     Indication: PROSTATE CANCER STAGE IV
     Route: 058
     Dates: start: 20060517, end: 20060929
  2. LEUPROLIDE ACETATE [Suspect]
     Route: 058
     Dates: start: 20060317, end: 20060317
  3. LEUPROLIDE ACETATE [Suspect]
     Route: 058
     Dates: start: 20060517, end: 20060517
  4. LEUPROLIDE ACETATE [Suspect]
     Route: 058
     Dates: start: 20060707, end: 20060707
  5. TAMSULOSIN HCL [Concomitant]
     Indication: BENIGN PROSTATIC HYPERPLASIA
     Route: 048
     Dates: end: 20060917

REACTIONS (1)
  - PANCREATIC CARCINOMA [None]
